FAERS Safety Report 8483876-0 (Version None)
Quarter: 2012Q2

REPORT INFORMATION
  Report Type: 
  Country: None (occurrence: None)
  Receive Date: 20120625
  Receipt Date: 20120327
  Transmission Date: 20120825
  Serious: Yes (Other)
  Sender: FDA-Public Use
  Company Number: 2012SP002652

PATIENT
  Age: 50 Year
  Sex: Male

DRUGS (3)
  1. VICTRELIS [Suspect]
     Indication: HEPATITIS C
     Dosage: 80 MG;QD;PO
     Route: 048
     Dates: start: 20110929
  2. PEGASYS [Suspect]
     Indication: HEPATITIS C
     Dosage: 180 MCG;QW;
     Dates: start: 20110901
  3. COPEGUS [Suspect]
     Indication: HEPATITIS C
     Dosage: 400 MG;TID;PO
     Route: 048
     Dates: start: 20110901

REACTIONS (2)
  - OEDEMA PERIPHERAL [None]
  - DERMATITIS EXFOLIATIVE [None]
